FAERS Safety Report 13876154 (Version 5)
Quarter: 2017Q4

REPORT INFORMATION
  Report Type: Spontaneous
  Country: US (occurrence: US)
  Receive Date: 20170817
  Receipt Date: 20171113
  Transmission Date: 20180320
  Serious: No
  Sender: FDA-Public Use
  Company Number: US-PFIZER INC-2017353255

PATIENT
  Age: 70 Year
  Sex: Female

DRUGS (5)
  1. ENBREL [Suspect]
     Active Substance: ETANERCEPT
     Indication: RHEUMATOID ARTHRITIS
     Dosage: 50 MG, WEEKLY (INJECTION ONCE PER WEEK)
     Route: 065
     Dates: start: 2000, end: 20170802
  2. XELJANZ [Concomitant]
     Active Substance: TOFACITINIB CITRATE
     Indication: RHEUMATOID ARTHRITIS
     Dosage: 11 MG, DAILY
     Route: 048
     Dates: start: 20170802
  3. VOLTAREN [Concomitant]
     Active Substance: DICLOFENAC SODIUM
     Dosage: UNK
  4. METHOTREXATE SODIUM. [Suspect]
     Active Substance: METHOTREXATE SODIUM
     Indication: RHEUMATOID ARTHRITIS
     Dosage: UNK WEEKLY, (6 INJECTION PER WEEK))
     Route: 065
     Dates: start: 1994
  5. CELEBREX [Concomitant]
     Active Substance: CELECOXIB
     Dosage: UNK

REACTIONS (1)
  - Drug ineffective [Recovering/Resolving]
